FAERS Safety Report 6196506-8 (Version None)
Quarter: 2009Q2

REPORT INFORMATION
  Report Type: 
  Country: None (occurrence: None)
  Receive Date: 20090518
  Receipt Date: 20090518
  Transmission Date: 20091009
  Serious: No
  Sender: FDA-Public Use
  Company Number: None

PATIENT
  Age: 68 Year
  Sex: Male
  Weight: 92.9874 kg

DRUGS (1)
  1. FLOMAX [Suspect]
     Dosage: ONCE DAILY BY MOUTH ONCE DAILY PO
     Route: 048
     Dates: start: 20090218, end: 20090505

REACTIONS (2)
  - INSOMNIA [None]
  - RASH [None]
